FAERS Safety Report 12388566 (Version 1)
Quarter: 2016Q2

REPORT INFORMATION
  Report Type: Spontaneous
  Country: US (occurrence: US)
  Receive Date: 20160520
  Receipt Date: 20160520
  Transmission Date: 20160815
  Serious: No
  Sender: FDA-Public Use
  Company Number: US-PFIZER INC-2016233978

PATIENT
  Age: 56 Year
  Sex: Female

DRUGS (1)
  1. GABAPENTIN. [Suspect]
     Active Substance: GABAPENTIN
     Indication: HOT FLUSH
     Dosage: 300 MG, 1X/DAY
     Route: 048
     Dates: start: 2014, end: 2014

REACTIONS (3)
  - Drug ineffective for unapproved indication [Unknown]
  - Dizziness [Unknown]
  - Feeling abnormal [Unknown]
